FAERS Safety Report 6113988-8 (Version None)
Quarter: 2009Q1

REPORT INFORMATION
  Report Type: 
  Country: None (occurrence: None)
  Receive Date: 20090312
  Receipt Date: 20081208
  Transmission Date: 20090719
  Serious: No
  Sender: FDA-Public Use
  Company Number: US-ABBOTT-08P-163-0491652-00

PATIENT
  Sex: Female
  Weight: 63.56 kg

DRUGS (2)
  1. LUPRON DEPOT [Suspect]
     Indication: ENDOMETRIOSIS
     Dates: start: 20070501, end: 20070501
  2. ALESSE [Concomitant]
     Indication: CONTRACEPTION
     Route: 048

REACTIONS (2)
  - AMENORRHOEA [None]
  - MIGRAINE [None]
